FAERS Safety Report 8609192 (Version 5)
Quarter: 2013Q2

REPORT INFORMATION
  Report Type: Report from Study
  Country: US (occurrence: US)
  Receive Date: 20120611
  Receipt Date: 20130617
  Transmission Date: 20140414
  Serious: Yes (Congenital Anomaly, Other)
  Sender: FDA-Public Use
  Company Number: US-ROCHE-1076740

PATIENT
  Sex: Female

DRUGS (1)
  1. OMALIZUMAB [Suspect]
     Indication: PRODUCT USED FOR UNKNOWN INDICATION
     Dosage: DATE OF LAST DOSE PRIOR TO AE BY MOTHER: SEP/2011
     Route: 064
     Dates: end: 20121106

REACTIONS (3)
  - Vesicoureteric reflux [Not Recovered/Not Resolved]
  - Gastrooesophageal reflux disease [Unknown]
  - Maternal exposure timing unspecified [Unknown]
